FAERS Safety Report 20128063 (Version 3)
Quarter: 2021Q4

REPORT INFORMATION
  Report Type: Report from Study
  Country: NL (occurrence: NL)
  Receive Date: 20211129
  Receipt Date: 20211209
  Transmission Date: 20220303
  Serious: Yes (Hospitalization)
  Sender: FDA-Public Use
  Company Number: NL-ABBVIE-21K-114-4177702-00

PATIENT
  Age: 70 Year
  Sex: Male

DRUGS (2)
  1. CARBIDOPA\LEVODOPA [Suspect]
     Active Substance: CARBIDOPA\LEVODOPA
     Indication: Parkinson^s disease
     Route: 050
     Dates: start: 20200810
  2. CARBIDOPA\LEVODOPA [Suspect]
     Active Substance: CARBIDOPA\LEVODOPA
     Dosage: MD 13.0 ML CD 3.1 ML/H ED 2.0 ML CND 2.0 ML/H
     Route: 050

REACTIONS (8)
  - Hip fracture [Recovering/Resolving]
  - Fall [Not Recovered/Not Resolved]
  - Overdose [Not Recovered/Not Resolved]
  - Device issue [Recovered/Resolved]
  - Unevaluable event [Not Recovered/Not Resolved]
  - Inappropriate schedule of product administration [Unknown]
  - Apathy [Unknown]
  - Underdose [Not Recovered/Not Resolved]

NARRATIVE: CASE EVENT DATE: 20210101
